FAERS Safety Report 9993752 (Version 1)
Quarter: 2014Q1

REPORT INFORMATION
  Report Type: Spontaneous
  Country: US (occurrence: US)
  Receive Date: 20140310
  Receipt Date: 20140310
  Transmission Date: 20141002
  Serious: Yes (Other)
  Sender: FDA-Public Use
  Company Number: PHHY2014US027073

PATIENT
  Sex: Male

DRUGS (4)
  1. PREDNISONE [Suspect]
     Route: 064
  2. AZATHIOPRINE [Suspect]
     Route: 064
  3. CYCLOPHOSPHAMIDE [Suspect]
     Route: 064
  4. RITUXIMAB [Suspect]

REACTIONS (3)
  - Premature baby [Unknown]
  - Low birth weight baby [Unknown]
  - Foetal exposure during pregnancy [Unknown]
